FAERS Safety Report 8965322 (Version 1)
Quarter: 2012Q4

REPORT INFORMATION
  Report Type: Report from Study
  Country: US (occurrence: US)
  Receive Date: 20121213
  Receipt Date: 20121213
  Transmission Date: 20130627
  Serious: Yes (Hospitalization)
  Sender: FDA-Public Use
  Company Number: US-009507513-1212USA004516

PATIENT
  Age: 0 Year
  Sex: Male
  Weight: 91.8 kg

DRUGS (5)
  1. TEMOZOLOMIDE [Suspect]
     Indication: GLIOBLASTOMA
     Dosage: 340 mg, Day 1-5 Cycle
     Route: 048
     Dates: start: 20110114, end: 20110314
  2. BEVACIZUMAB [Suspect]
     Indication: GLIOBLASTOMA
     Dosage: 918 mg, 1 every 2 weeks
     Route: 042
     Dates: start: 20110114, end: 20110310
  3. TOPOTECAN [Suspect]
     Indication: GLIOBLASTOMA
     Dosage: 3 mg, day 2-6 of 28 day cycle
     Route: 048
     Dates: start: 20110115, end: 20110315
  4. KEPPRA [Concomitant]
     Dosage: 500 mg, bid
  5. KEFLEX [Concomitant]
     Dosage: 500 mg, bid

REACTIONS (2)
  - Wound dehiscence [Unknown]
  - Infection [Unknown]
